FAERS Safety Report 4614674-3 (Version None)
Quarter: 2005Q2

REPORT INFORMATION
  Report Type: 
  Country: None (occurrence: None)
  Receive Date: 20050311
  Receipt Date: 20050119
  Transmission Date: 20051028
  Serious: No
  Sender: FDA-Public Use
  Company Number: 2005-BP-00910BP

PATIENT
  Age: 79 Year
  Sex: Female

DRUGS (5)
  1. SPIRIVA [Suspect]
     Indication: ASTHMA
     Dosage: 18 MCG (18 MCG, QD), IH
     Route: 055
     Dates: start: 20041101
  2. SPIRIVA [Suspect]
     Indication: ASTHMA
     Dosage: 18 MCG (18 MCG, QD), IH
     Route: 055
     Dates: start: 20041101
  3. ADVAIR DISKUS 100/50 [Concomitant]
  4. OXYGEN (OXYGEN) [Concomitant]
  5. PREDNISONE [Concomitant]

REACTIONS (2)
  - DRY THROAT [None]
  - FEELING ABNORMAL [None]
